FAERS Safety Report 5892964-4 (Version None)
Quarter: 2008Q3

REPORT INFORMATION
  Report Type: 
  Country: None (occurrence: None)
  Receive Date: 20080923
  Receipt Date: 20080912
  Transmission Date: 20090109
  Serious: Yes (Hospitalization)
  Sender: FDA-Public Use
  Company Number: SE-JNJFOC-20080903504

PATIENT
  Age: 46 Year
  Sex: Female

DRUGS (2)
  1. REMICADE [Suspect]
     Indication: COLITIS
     Dosage: ONE DOSE
     Route: 042
  2. ASACOL [Concomitant]

REACTIONS (2)
  - BLOOD AMYLASE INCREASED [None]
  - LIVER DISORDER [None]
